FAERS Safety Report 9772479 (Version 1)
Quarter: 2013Q4

REPORT INFORMATION
  Report Type: Spontaneous
  Country: FR (occurrence: None)
  Receive Date: 20131217
  Receipt Date: 20131217
  Transmission Date: 20140711
  Serious: Yes (Death)
  Sender: FDA-Public Use
  Company Number: SYM-2013-13877

PATIENT
  Age: 39 Year
  Sex: Female

DRUGS (7)
  1. MONO-TILDIEM [Suspect]
     Indication: HYPERTENSION
     Route: 048
  2. LAMICTAL [Suspect]
     Indication: PRODUCT USED FOR UNKNOWN INDICATION
     Route: 048
     Dates: start: 20131108
  3. CYMBALTA [Suspect]
     Indication: PRODUCT USED FOR UNKNOWN INDICATION
     Dosage: 30 MG DAILY,ORAL.
     Dates: start: 20131108
  4. NOCTAMIDE [Suspect]
     Indication: PRODUCT USED FOR UNKNOWN INDICATION
     Dosage: 2 MG, DAILY,ORAL.
  5. ALPRAZOLAM (ALPRAZOLAM) (ALPRAZOLAM) [Suspect]
     Indication: PRODUCT USED FOR UNKNOWN INDICATION
     Route: 048
  6. TERCIAN [Suspect]
     Indication: PRODUCT USED FOR UNKNOWN INDICATION
     Dosage: 25 DROPS(S), DAILY, ORAL
     Route: 048
  7. DEPAMIDE(VALPROMIDE) (VALPROMIDE) [Concomitant]

REACTIONS (1)
  - Death [None]
